FAERS Safety Report 17221683 (Version 1)
Quarter: 2020Q1

REPORT INFORMATION
  Report Type: Spontaneous
  Country: CN (occurrence: CN)
  Receive Date: 20200101
  Receipt Date: 20200101
  Transmission Date: 20200409
  Serious: Yes (Hospitalization)
  Sender: FDA-Public Use
  Company Number: CN-ABBVIE-19P-035-3215775-00

PATIENT
  Age: 37 Year
  Sex: Male
  Weight: 88 kg

DRUGS (2)
  1. EZETROL [Suspect]
     Active Substance: EZETIMIBE
     Indication: LIPIDS DECREASED
     Route: 048
     Dates: start: 20191213, end: 20191217
  2. LIPANTHYL [Suspect]
     Active Substance: FENOFIBRATE
     Indication: LIPIDS DECREASED
     Route: 048
     Dates: start: 20191213, end: 20191217

REACTIONS (1)
  - Hepatic function abnormal [Recovering/Resolving]

NARRATIVE: CASE EVENT DATE: 20191216
